FAERS Safety Report 6185266-2 (Version None)
Quarter: 2009Q2

REPORT INFORMATION
  Report Type: 
  Country: None (occurrence: None)
  Receive Date: 20090511
  Receipt Date: 20090430
  Transmission Date: 20091009
  Serious: Yes (Other)
  Sender: FDA-Public Use
  Company Number: US-ROCHE-512843

PATIENT
  Sex: Female
  Weight: 65.8 kg

DRUGS (18)
  1. ACCUTANE [Suspect]
     Dosage: REPORTED AS 40MG OD
     Route: 048
     Dates: start: 20030509
  2. ACCUTANE [Suspect]
     Dosage: REPORTED AS 40MG BID ALTERNATING WITH 40 MG OD
     Route: 048
     Dates: start: 20030609, end: 20031019
  3. ORTHO TRI-CYCLEN [Concomitant]
  4. CLINDAMYCIN LOTION [Concomitant]
     Dates: start: 20020702
  5. COTRIM [Concomitant]
     Indication: ACNE
     Dates: start: 20021018
  6. COTRIM [Concomitant]
     Dates: start: 20021107
  7. COTRIM [Concomitant]
     Dates: start: 20030425
  8. CLEOCIN T [Concomitant]
     Indication: ACNE
     Dates: start: 20021018
  9. CLEOCIN T [Concomitant]
     Dates: start: 20030425
  10. PLEXION [Concomitant]
     Indication: ACNE
     Dates: start: 20021018
  11. NEUTROGENA [Concomitant]
     Dates: start: 20030425
  12. MINOCYCLINE HCL [Concomitant]
     Indication: ACNE
     Dates: start: 20020222
  13. METROCREAM [Concomitant]
     Indication: ACNE
     Dates: start: 20020222
  14. DOXYCYCLINE [Concomitant]
     Indication: ACNE
     Dates: start: 20020426
  15. CLINDAMYCIN TOPICAL GEL [Concomitant]
     Indication: ACNE
     Dates: start: 20020426
  16. PREVACID [Concomitant]
     Dates: start: 20020426
  17. ERYTHROMYCIN [Concomitant]
  18. RETIN-A [Concomitant]

REACTIONS (23)
  - ADENOMA BENIGN [None]
  - ADNEXA UTERI MASS [None]
  - ANXIETY [None]
  - BACK PAIN [None]
  - COLITIS [None]
  - COLITIS ULCERATIVE [None]
  - CROHN'S DISEASE [None]
  - DEPRESSION [None]
  - DRY SKIN [None]
  - GASTROINTESTINAL DISORDER [None]
  - HEPATIC CYST [None]
  - INFLAMMATORY BOWEL DISEASE [None]
  - INSOMNIA [None]
  - IRRITABLE BOWEL SYNDROME [None]
  - LUMBAR RADICULOPATHY [None]
  - MOUTH CYST [None]
  - MYALGIA [None]
  - MYOSITIS [None]
  - OVARIAN CYST [None]
  - PAIN [None]
  - PROCTITIS [None]
  - ROAD TRAFFIC ACCIDENT [None]
  - SCOLIOSIS [None]
